FAERS Safety Report 8532443 (Version 5)
Quarter: 2014Q1

REPORT INFORMATION
  Report Type: Spontaneous
  Country: US (occurrence: US)
  Receive Date: 20120426
  Receipt Date: 20140110
  Transmission Date: 20141002
  Serious: Yes (Hospitalization)
  Sender: FDA-Public Use
  Company Number: US-GLAXOSMITHKLINE-A0975187A

PATIENT
  Age: 28 Year
  Sex: Female

DRUGS (3)
  1. FLOLAN [Suspect]
     Indication: PULMONARY ARTERIAL HYPERTENSION
     Dosage: 24NG CONTINUOUS
     Route: 042
     Dates: start: 20110928
  2. KEFLEX [Suspect]
     Indication: PRODUCT USED FOR UNKNOWN INDICATION
     Route: 065
  3. REVATIO [Concomitant]

REACTIONS (8)
  - Catheter site haemorrhage [Unknown]
  - Pneumonia [Unknown]
  - Rash [Unknown]
  - Malaise [Unknown]
  - Pyrexia [Unknown]
  - Vomiting [Unknown]
  - Cough [Unknown]
  - Rash pruritic [Unknown]
